FAERS Safety Report 7618237-7 (Version None)
Quarter: 2011Q3

REPORT INFORMATION
  Report Type: 
  Country: None (occurrence: None)
  Receive Date: 20110718
  Receipt Date: 20110701
  Transmission Date: 20111222
  Serious: Yes (Death, Hospitalization)
  Sender: FDA-Public Use
  Company Number: DK-GLAXOSMITHKLINE-B0408804B

PATIENT
  Sex: Female
  Weight: 56.4 kg

DRUGS (4)
  1. IBUPROFEN [Concomitant]
     Dosage: 600MG AS REQUIRED
  2. ACETAMINOPHEN [Concomitant]
     Dosage: 500MG AS REQUIRED
  3. LETROZOLE [Suspect]
     Indication: BREAST CANCER METASTATIC
     Dosage: 2.5MG PER DAY
     Route: 048
     Dates: start: 20050714
  4. LAPATINIB [Suspect]
     Indication: BREAST CANCER METASTATIC
     Dosage: 1TAB SIX TIMES PER DAY
     Route: 048
     Dates: start: 20050714

REACTIONS (13)
  - COMA [None]
  - PRESYNCOPE [None]
  - BRAIN DEATH [None]
  - SOMNOLENCE [None]
  - SINOATRIAL BLOCK [None]
  - STATUS EPILEPTICUS [None]
  - PNEUMONIA [None]
  - LOSS OF CONSCIOUSNESS [None]
  - NAUSEA [None]
  - DIZZINESS [None]
  - AMNESIA [None]
  - MALAISE [None]
  - CONVULSION [None]
